FAERS Safety Report 20925322 (Version 1)
Quarter: 2022Q2

REPORT INFORMATION
  Report Type: Report from Study
  Country: US (occurrence: US)
  Receive Date: 20220607
  Receipt Date: 20220607
  Transmission Date: 20220721
  Serious: Yes (Other)
  Sender: FDA-Public Use
  Company Number: US-ABBVIE-22K-163-4423092-00

PATIENT
  Sex: Female

DRUGS (2)
  1. ORILISSA [Suspect]
     Active Substance: ELAGOLIX SODIUM
     Indication: Product used for unknown indication
     Route: 048
     Dates: start: 202203, end: 2022
  2. ORILISSA [Suspect]
     Active Substance: ELAGOLIX SODIUM
     Route: 048
     Dates: start: 2022

REACTIONS (8)
  - Pulmonary pain [Recovered/Resolved]
  - Pneumothorax [Recovered/Resolved]
  - Post-acute COVID-19 syndrome [Not Recovered/Not Resolved]
  - Abdominal pain [Recovered/Resolved]
  - Dyschezia [Recovered/Resolved]
  - Heavy menstrual bleeding [Recovered/Resolved]
  - Pelvic pain [Recovering/Resolving]
  - Endometriosis [Unknown]
